FAERS Safety Report 7384535-8 (Version None)
Quarter: 2011Q1

REPORT INFORMATION
  Report Type: 
  Country: None (occurrence: None)
  Receive Date: 20110330
  Receipt Date: 20110325
  Transmission Date: 20110831
  Serious: No
  Sender: FDA-Public Use
  Company Number: US-PFIZER INC-2011067399

PATIENT
  Sex: Female
  Weight: 68.027 kg

DRUGS (4)
  1. PRISTIQ [Suspect]
     Indication: OBSESSIVE-COMPULSIVE DISORDER
  2. PRISTIQ [Suspect]
     Indication: DEPRESSION
     Dosage: 50 MG, 1X/DAY
     Route: 048
     Dates: start: 20110301
  3. ATIVAN [Concomitant]
     Indication: ANXIETY
     Dosage: UNK
  4. PRISTIQ [Suspect]
     Indication: ANXIETY

REACTIONS (13)
  - ANXIETY [None]
  - INSOMNIA [None]
  - HYPERHIDROSIS [None]
  - EMOTIONAL DISORDER [None]
  - TRISMUS [None]
  - LETHARGY [None]
  - LIBIDO DECREASED [None]
  - ASTHENIA [None]
  - HEADACHE [None]
  - DRY MOUTH [None]
  - FATIGUE [None]
  - MUSCLE TWITCHING [None]
  - DECREASED APPETITE [None]
